FAERS Safety Report 21945752 (Version 1)
Quarter: 2023Q1

REPORT INFORMATION
  Report Type: Spontaneous
  Country: FR (occurrence: FR)
  Receive Date: 20230202
  Receipt Date: 20230202
  Transmission Date: 20230418
  Serious: Yes (Other)
  Sender: FDA-Public Use
  Company Number: None

PATIENT
  Age: 24 Year
  Sex: Female
  Weight: 46 kg

DRUGS (18)
  1. BETAMETHASONE [Suspect]
     Active Substance: BETAMETHASONE
     Indication: Drug reaction with eosinophilia and systemic symptoms
     Dosage: UNK
     Route: 003
     Dates: start: 20190809, end: 20190821
  2. BETAMETHASONE [Suspect]
     Active Substance: BETAMETHASONE
     Dosage: UNK
     Route: 003
     Dates: start: 20190822, end: 20190923
  3. BETAMETHASONE [Suspect]
     Active Substance: BETAMETHASONE
     Dosage: UNK
     Route: 003
     Dates: start: 20190924, end: 20191003
  4. BETAMETHASONE [Suspect]
     Active Substance: BETAMETHASONE
     Dosage: UNK
     Route: 003
     Dates: start: 20191004, end: 20191015
  5. BETAMETHASONE [Suspect]
     Active Substance: BETAMETHASONE
     Dosage: UNK
     Route: 003
     Dates: start: 20191016, end: 20191031
  6. BETAMETHASONE [Suspect]
     Active Substance: BETAMETHASONE
     Dosage: UNK
     Route: 003
     Dates: start: 20191101, end: 20191115
  7. BETAMETHASONE VALERATE [Suspect]
     Active Substance: BETAMETHASONE VALERATE
     Indication: Drug reaction with eosinophilia and systemic symptoms
     Dosage: 0,1% 2 TUBES/D THEN 1,5 TUBE/D
     Route: 003
     Dates: start: 20190723, end: 20190808
  8. METHYLPREDNISOLONE HEMISUCCINATE [Suspect]
     Active Substance: METHYLPREDNISOLONE HEMISUCCINATE
     Indication: Drug reaction with eosinophilia and systemic symptoms
     Dosage: 500 MG, QD
     Route: 042
     Dates: start: 20190725, end: 20190727
  9. CLOBETASOL PROPIONATE [Suspect]
     Active Substance: CLOBETASOL PROPIONATE
     Indication: Drug reaction with eosinophilia and systemic symptoms
     Dosage: 0.05% 2 TUBES/D
     Route: 003
     Dates: start: 20190726, end: 20190731
  10. PREDNISONE [Suspect]
     Active Substance: PREDNISONE
     Indication: Drug reaction with eosinophilia and systemic symptoms
     Dosage: SCORED TABLET, 50 MG QD
     Route: 048
     Dates: start: 20190723, end: 20190808
  11. PREDNISONE [Suspect]
     Active Substance: PREDNISONE
     Indication: Drug reaction with eosinophilia and systemic symptoms
     Dosage: 45 MG, QD
     Route: 048
     Dates: start: 20190809
  12. PREDNISONE [Suspect]
     Active Substance: PREDNISONE
     Dosage: 50 MG, QD
     Route: 048
     Dates: start: 20190809, end: 20190821
  13. PREDNISONE [Suspect]
     Active Substance: PREDNISONE
     Dosage: 45 MG, QD
     Route: 048
     Dates: start: 20190822, end: 20190923
  14. PREDNISONE [Suspect]
     Active Substance: PREDNISONE
     Dosage: 40 MG, QD
     Route: 048
     Dates: start: 20190924, end: 20191003
  15. PREDNISONE [Suspect]
     Active Substance: PREDNISONE
     Dosage: 35 MG, QD
     Route: 048
     Dates: start: 20191004, end: 20191015
  16. PREDNISONE [Suspect]
     Active Substance: PREDNISONE
     Dosage: 30 MG, QD
     Route: 048
     Dates: start: 20191016, end: 20191031
  17. PREDNISONE [Suspect]
     Active Substance: PREDNISONE
     Dosage: 25 MG, QD
     Route: 048
     Dates: start: 20191101, end: 20191115
  18. PHENOBARBITAL [Suspect]
     Active Substance: PHENOBARBITAL
     Dosage: UNK

REACTIONS (2)
  - Hirsutism [Not Recovered/Not Resolved]
  - Steroid diabetes [Not Recovered/Not Resolved]

NARRATIVE: CASE EVENT DATE: 20190821
